FAERS Safety Report 19239909 (Version 1)
Quarter: 2021Q2

REPORT INFORMATION
  Report Type: Spontaneous
  Country: US (occurrence: US)
  Receive Date: 20210511
  Receipt Date: 20210511
  Transmission Date: 20210717
  Serious: No
  Sender: FDA-Public Use
  Company Number: US-BRISTOL-MYERS SQUIBB COMPANY-BMS-2021-045012

PATIENT
  Age: 58 Year
  Sex: Male

DRUGS (1)
  1. SPRYCEL [Suspect]
     Active Substance: DASATINIB
     Indication: MYELOID LEUKAEMIA
     Dosage: 50 MILLIGRAM, QD
     Route: 048

REACTIONS (3)
  - Fatigue [Unknown]
  - Somnolence [Unknown]
  - Myalgia [Unknown]

NARRATIVE: CASE EVENT DATE: 202104
